FAERS Safety Report 10930901 (Version 1)
Quarter: 2015Q1

REPORT INFORMATION
  Report Type: Spontaneous
  Country: US (occurrence: None)
  Receive Date: 20150318
  Receipt Date: 20150318
  Transmission Date: 20150721
  Serious: Yes (Death, Hospitalization)
  Sender: FDA-Public Use
  Company Number: None

PATIENT
  Age: 7 Year
  Sex: Male
  Weight: 35.7 kg

DRUGS (2)
  1. PEG/L-ASPARAGINASE [Suspect]
     Active Substance: PEGASPARGASE
     Dosage: 1 UNIT
     Dates: end: 20150307
  2. DEXAMETHASONE. [Suspect]
     Active Substance: DEXAMETHASONE
     Dates: end: 20150313

REACTIONS (4)
  - Angioedema [None]
  - Petechiae [None]
  - Vomiting [None]
  - General physical health deterioration [None]

NARRATIVE: CASE EVENT DATE: 20150313
